FAERS Safety Report 6790605-5 (Version None)
Quarter: 2010Q2

REPORT INFORMATION
  Report Type: 
  Country: None (occurrence: None)
  Receive Date: 20100624
  Receipt Date: 20080612
  Transmission Date: 20101027
  Serious: Yes (Hospitalization, Other)
  Sender: FDA-Public Use
  Company Number: US-PFIZER INC-2008049402

PATIENT
  Sex: Female
  Weight: 79.83 kg

DRUGS (6)
  1. FELDENE [Suspect]
     Indication: ARTHRITIS
     Dates: end: 20000101
  2. ASPIRIN [Suspect]
     Indication: PROPHYLAXIS
     Dosage: 81 MG DAILY
     Route: 048
     Dates: start: 19990101, end: 20000101
  3. LEVOTHYROXINE [Concomitant]
  4. POTASSIUM [Concomitant]
  5. ALPRAZOLAM [Concomitant]
  6. IRON [Concomitant]

REACTIONS (2)
  - GASTROINTESTINAL HAEMORRHAGE [None]
  - GASTROINTESTINAL ULCER PERFORATION [None]
